FAERS Safety Report 12584637 (Version 1)
Quarter: 2016Q3

REPORT INFORMATION
  Report Type: Spontaneous
  Country: US (occurrence: US)
  Receive Date: 20160722
  Receipt Date: 20160722
  Transmission Date: 20161109
  Serious: Yes (Death, Other)
  Sender: FDA-Public Use
  Company Number: US-FRESENIUS MEDICAL CARE RENAL THERAPIES GROUP-17137472015-999327

PATIENT
  Age: 63 Year
  Sex: Male
  Weight: 145 kg

DRUGS (3)
  1. BICARBONATE [Concomitant]
     Active Substance: BICARBONATE ION
     Indication: PRODUCT USED FOR UNKNOWN INDICATION
     Route: 065
  2. HEPARIN [Concomitant]
     Active Substance: HEPARIN SODIUM
     Indication: PRODUCT USED FOR UNKNOWN INDICATION
     Route: 065
  3. 0.9% SODIUM CHLORIDE INJECTION [Suspect]
     Active Substance: SODIUM CHLORIDE
     Indication: HAEMODIALYSIS
     Route: 042

REACTIONS (7)
  - Death [Fatal]
  - Dyspnoea [None]
  - Arteriosclerosis coronary artery [None]
  - Chronic kidney disease [None]
  - Hypotension [None]
  - Arrhythmia [None]
  - Acute myocardial infarction [None]

NARRATIVE: CASE EVENT DATE: 20150826
